FAERS Safety Report 24577510 (Version 1)
Quarter: 2024Q4

REPORT INFORMATION
  Report Type: Spontaneous
  Country: US (occurrence: US)
  Receive Date: 20241104
  Receipt Date: 20241104
  Transmission Date: 20250115
  Serious: No
  Sender: PERRIGO
  Company Number: US-PERRIGO-24US006359

PATIENT
  Age: 85 Year
  Sex: Male
  Weight: 65.306 kg

DRUGS (6)
  1. POLYETHYLENE GLYCOL 3350 [Suspect]
     Active Substance: POLYETHYLENE GLYCOL 3350
     Indication: Constipation
     Dosage: 17 G, QD
     Route: 048
     Dates: start: 20240417, end: 20240509
  2. POLYETHYLENE GLYCOL 3350 [Suspect]
     Active Substance: POLYETHYLENE GLYCOL 3350
     Dosage: 17 G, QD
     Route: 048
     Dates: start: 20240514
  3. CITRUCEL [Suspect]
     Active Substance: METHYLCELLULOSE (4000 CPS)
     Indication: Constipation
     Dosage: 1 TABLESPOON, QD
     Route: 048
     Dates: start: 20240417, end: 20240509
  4. CITRUCEL [Suspect]
     Active Substance: METHYLCELLULOSE (4000 CPS)
     Dosage: 1 TABLESPOON, QD
     Route: 048
     Dates: start: 20240514
  5. VITAMIN B12 [Concomitant]
     Active Substance: CYANOCOBALAMIN
     Indication: Asthenia
     Dosage: UNK
     Route: 065
     Dates: start: 2023
  6. VITAMIN D3 [Concomitant]
     Active Substance: CHOLECALCIFEROL
     Indication: Supplementation therapy
     Dosage: UNK
     Route: 065
     Dates: start: 2022

REACTIONS (3)
  - Faecal volume increased [Recovered/Resolved]
  - Therapeutic product effect decreased [Unknown]
  - Incorrect product administration duration [Unknown]

NARRATIVE: CASE EVENT DATE: 20240424
